FAERS Safety Report 9924077 (Version 2)
Quarter: 2015Q4

REPORT INFORMATION
  Report Type: Report from Study
  Country: US (occurrence: US)
  Receive Date: 20140225
  Receipt Date: 20151110
  Transmission Date: 20160305
  Serious: Yes (Other)
  Sender: FDA-Public Use
  Company Number: US-ROCHE-1333584

PATIENT
  Age: 64 Year
  Sex: Female

DRUGS (6)
  1. LUCENTIS [Suspect]
     Active Substance: RANIBIZUMAB
     Indication: DIABETIC RETINOPATHY
     Route: 050
  2. AVASTIN [Suspect]
     Active Substance: BEVACIZUMAB
     Indication: DIABETIC RETINOPATHY
     Route: 065
  3. LUCENTIS [Suspect]
     Active Substance: RANIBIZUMAB
     Indication: DIABETIC RETINAL OEDEMA
     Route: 050
  4. AVASTIN [Suspect]
     Active Substance: BEVACIZUMAB
     Indication: DIABETIC RETINAL OEDEMA
  5. PHENYLEPHRINE [Concomitant]
     Active Substance: PHENYLEPHRINE\PHENYLEPHRINE HYDROCHLORIDE
     Route: 065
  6. TROPICAMIDE. [Concomitant]
     Active Substance: TROPICAMIDE
     Route: 065

REACTIONS (9)
  - Vitreous detachment [Unknown]
  - Fibrosis [Unknown]
  - Macular oedema [Unknown]
  - Eyelid ptosis [Unknown]
  - Cystoid macular oedema [Unknown]
  - Aneurysm [Unknown]
  - Off label use [Unknown]
  - Intraocular lens implant [Unknown]
  - Cutis laxa [Unknown]

NARRATIVE: CASE EVENT DATE: 20110607
